FAERS Safety Report 4449509-5 (Version None)
Quarter: 2004Q3

REPORT INFORMATION
  Report Type: 
  Country: None (occurrence: None)
  Receive Date: 20040914
  Receipt Date: 20040902
  Transmission Date: 20050211
  Serious: Yes (Death, Life-Threatening)
  Sender: FDA-Public Use
  Company Number: AU-JNJFOC-20040304029

PATIENT
  Sex: Female

DRUGS (10)
  1. TRAMADOL HCL [Suspect]
     Indication: DRUG USE FOR UNKNOWN INDICATION
     Route: 049
     Dates: start: 20030913, end: 20030924
  2. WARFARIN SODIUM [Interacting]
     Indication: DRUG USE FOR UNKNOWN INDICATION
     Route: 049
     Dates: end: 20030924
  3. PHENYTOIN SODIUM [Suspect]
     Indication: DRUG USE FOR UNKNOWN INDICATION
     Route: 049
     Dates: end: 20030924
  4. SPIRONOLACTONE [Suspect]
     Indication: DRUG USE FOR UNKNOWN INDICATION
     Route: 049
     Dates: end: 20030924
  5. ISOSORBIDE MONONITRATE [Concomitant]
     Dates: start: 20030924
  6. SOTALOL HYDROCHLORIDE [Concomitant]
     Route: 049
     Dates: end: 20030924
  7. ACETAMINOPHEN W/ CODEINE [Concomitant]
     Route: 049
     Dates: start: 20030912, end: 20030924
  8. ACETAMINOPHEN W/ CODEINE [Concomitant]
     Dosage: AS REQUIRED
     Route: 049
     Dates: start: 20030912, end: 20030924
  9. FRUSEMIDE [Concomitant]
     Route: 049
  10. RAMIPRIL [Concomitant]
     Route: 049
     Dates: end: 20030924

REACTIONS (3)
  - DRUG INTERACTION [None]
  - HAEMORRHAGIC STROKE [None]
  - INTERNATIONAL NORMALISED RATIO INCREASED [None]
